FAERS Safety Report 18728564 (Version 8)
Quarter: 2022Q1

REPORT INFORMATION
  Report Type: Spontaneous
  Country: US (occurrence: US)
  Receive Date: 20210112
  Receipt Date: 20220107
  Transmission Date: 20220423
  Serious: Yes (Hospitalization, Other)
  Sender: FDA-Public Use
  Company Number: US-GLOBAL BLOOD THERAPEUTICS INC-US-GBT-21-00074

PATIENT
  Age: 27 Year
  Sex: Female

DRUGS (32)
  1. OXBRYTA [Suspect]
     Active Substance: VOXELOTOR
     Indication: Sickle cell disease
     Route: 048
     Dates: start: 20200401, end: 20200408
  2. OXBRYTA [Suspect]
     Active Substance: VOXELOTOR
     Indication: Anaemia
     Route: 048
     Dates: start: 20200409, end: 20200628
  3. OXBRYTA [Suspect]
     Active Substance: VOXELOTOR
     Route: 048
     Dates: start: 20200729, end: 202012
  4. OXBRYTA [Suspect]
     Active Substance: VOXELOTOR
     Route: 048
     Dates: start: 202103
  5. VITAMIN C [Concomitant]
     Active Substance: ASCORBIC ACID
     Indication: Product used for unknown indication
     Dosage: NOT PROVIDED
  6. VITAMIN D3 [Concomitant]
     Active Substance: CHOLECALCIFEROL
     Indication: Sickle cell disease
     Route: 048
     Dates: start: 20191017, end: 20210707
  7. LOSARTAN [Concomitant]
     Active Substance: LOSARTAN
     Indication: Product used for unknown indication
     Dosage: NOT PROVIDED
  8. ZINC SULFATE [Concomitant]
     Active Substance: ZINC SULFATE
     Indication: Product used for unknown indication
     Dosage: NOT PROVIDED
  9. VENTOLIN [Concomitant]
     Active Substance: ALBUTEROL SULFATE
     Indication: Product used for unknown indication
     Dates: start: 20200103
  10. AMMONIUM LACTATE [Concomitant]
     Active Substance: AMMONIUM LACTATE
     Indication: Product used for unknown indication
     Dosage: NOT PROVIDED
     Route: 062
  11. CETIRIZINE [Concomitant]
     Active Substance: CETIRIZINE HYDROCHLORIDE
     Indication: Product used for unknown indication
  12. CLEOCIN T [Concomitant]
     Active Substance: CLINDAMYCIN PHOSPHATE
     Indication: Product used for unknown indication
     Dosage: NOT PROVIDED
     Route: 062
  13. DICLOFENAC [Concomitant]
     Active Substance: DICLOFENAC
     Indication: Product used for unknown indication
     Route: 048
     Dates: start: 20210224, end: 20210325
  14. FLOVENT [Concomitant]
     Active Substance: FLUTICASONE PROPIONATE
     Indication: Product used for unknown indication
  15. FOLIC ACID [Concomitant]
     Active Substance: FOLIC ACID
     Indication: Sickle cell disease
     Route: 048
     Dates: start: 20160830
  16. HYDROCORTISONE [Concomitant]
     Active Substance: HYDROCORTISONE
     Indication: Product used for unknown indication
     Dosage: NOT PROVIDED
  17. IBUPROFEN [Concomitant]
     Active Substance: IBUPROFEN
     Indication: Product used for unknown indication
  18. DEPO-PROVERA [Concomitant]
     Active Substance: MEDROXYPROGESTERONE ACETATE
     Indication: Product used for unknown indication
     Route: 030
  19. VITAMINS [Concomitant]
     Active Substance: VITAMINS
     Indication: Product used for unknown indication
  20. OXYCODONE [Concomitant]
     Active Substance: OXYCODONE
     Indication: Pain
  21. SENNA [Concomitant]
     Active Substance: SENNA LEAF\SENNOSIDES\SENNOSIDES A AND B
     Indication: Product used for unknown indication
  22. PERI-COLACE [Concomitant]
     Active Substance: CASANTHRANOL\DOCUSATE SODIUM
     Indication: Product used for unknown indication
  23. COLACE [Concomitant]
     Active Substance: DOCUSATE SODIUM
     Indication: Product used for unknown indication
     Route: 048
     Dates: start: 20210219, end: 20210301
  24. COLACE [Concomitant]
     Active Substance: DOCUSATE SODIUM
     Route: 048
     Dates: start: 20210402
  25. TRAMADOL [Concomitant]
     Active Substance: TRAMADOL
     Indication: Pain
  26. KENALOG [Concomitant]
     Active Substance: TRIAMCINOLONE ACETONIDE
     Indication: Product used for unknown indication
     Dosage: NOT PROVIDED
  27. ACETAMINOPHEN [Concomitant]
     Active Substance: ACETAMINOPHEN
     Indication: Sickle cell disease
     Route: 048
     Dates: start: 20180831, end: 20210412
  28. AUGMENTIN [Concomitant]
     Active Substance: AMOXICILLIN\CLAVULANATE POTASSIUM
     Indication: Pelvic inflammatory disease
     Dosage: 875-125 MG
     Route: 048
     Dates: start: 20210219, end: 20210227
  29. BROMPHENIRAMINE-PSEUDOEPHEDRINE-DM [Concomitant]
     Indication: Bronchitis
     Route: 048
     Dates: start: 20200103, end: 20200113
  30. DEXTROMETHORPHAN [Concomitant]
     Active Substance: DEXTROMETHORPHAN
     Indication: Sickle cell disease
     Route: 048
     Dates: start: 20201220, end: 20210129
  31. COVID 19 Vaccination Moderna 1st dosage lot# 006C21A [Concomitant]
     Indication: COVID-19
     Route: 030
     Dates: start: 20210426, end: 20210426
  32. COVID 19 Vaccination Moderna lot# 038C21A [Concomitant]
     Indication: COVID-19
     Route: 030
     Dates: start: 20210524, end: 20210524

REACTIONS (12)
  - Uterine leiomyoma [Unknown]
  - Inflammation [Recovered/Resolved]
  - Sickle cell anaemia with crisis [Recovered/Resolved]
  - Infection [Recovered/Resolved]
  - Acute chest syndrome [Recovered/Resolved]
  - Myomectomy [Recovered/Resolved]
  - COVID-19 [Recovered/Resolved]
  - Dizziness [Recovered/Resolved]
  - Diarrhoea [Recovered/Resolved]
  - Nausea [Recovered/Resolved]
  - Insurance issue [Unknown]
  - Therapy interrupted [Unknown]

NARRATIVE: CASE EVENT DATE: 20200306
